FAERS Safety Report 13177252 (Version 2)
Quarter: 2017Q3

REPORT INFORMATION
  Report Type: Report from Study
  Country: US (occurrence: US)
  Receive Date: 20170201
  Receipt Date: 20170731
  Transmission Date: 20171127
  Serious: No
  Sender: FDA-Public Use
  Company Number: US-EXELIXIS-CABO-16007505

PATIENT
  Age: 62 Year
  Sex: Male

DRUGS (11)
  1. METOPROLOL. [Concomitant]
     Active Substance: METOPROLOL
  2. VITAMIN D [Concomitant]
     Active Substance: CHOLECALCIFEROL
  3. ATORVASTATIN [Concomitant]
     Active Substance: ATORVASTATIN
  4. ULORIC [Concomitant]
     Active Substance: FEBUXOSTAT
  5. TURMERIC [Concomitant]
     Active Substance: HERBALS\TURMERIC
  6. PRILOSEC [Concomitant]
     Active Substance: OMEPRAZOLE MAGNESIUM
  7. CABOMETYX [Suspect]
     Active Substance: CABOZANTINIB S-MALATE
     Indication: RENAL CANCER
     Dosage: 60 MG, QD
     Route: 048
     Dates: start: 20160720
  8. LEVOTHYROXINE. [Concomitant]
     Active Substance: LEVOTHYROXINE
  9. ALLEGRA ALLERGY [Concomitant]
     Active Substance: FEXOFENADINE HYDROCHLORIDE
  10. TORSEMIDE. [Concomitant]
     Active Substance: TORSEMIDE
  11. DOXAZOSIN [Concomitant]
     Active Substance: DOXAZOSIN\DOXAZOSIN MESYLATE

REACTIONS (7)
  - Choking [Unknown]
  - Gait disturbance [Unknown]
  - Blister [Unknown]
  - Loss of consciousness [Unknown]
  - Diarrhoea [Unknown]
  - Nasal congestion [Unknown]
  - Erythema [Unknown]

NARRATIVE: CASE EVENT DATE: 201610
